FAERS Safety Report 5423735-0 (Version None)
Quarter: 2007Q3

REPORT INFORMATION
  Report Type: 
  Country: None (occurrence: None)
  Receive Date: 20070727
  Receipt Date: 20040228
  Transmission Date: 20080115
  Serious: Yes (Life-Threatening)
  Sender: FDA-Public Use
  Company Number: THYM-10197

PATIENT
  Age: 67 Year
  Sex: Female
  Weight: 69.9 kg

DRUGS (4)
  1. THYMOGLOBULIN [Suspect]
     Indication: TRANSPLANT
     Dosage: 75 MG QD
     Dates: start: 20030605, end: 20030608
  2. SOLU-MEDROL [Concomitant]
  3. CELLCEPT [Concomitant]
  4. GENERAL ANESTHESIA [Concomitant]

REACTIONS (1)
  - SEDATION [None]
